FAERS Safety Report 5603299-9 (Version None)
Quarter: 2008Q1

REPORT INFORMATION
  Report Type: 
  Country: None (occurrence: None)
  Receive Date: 20080123
  Receipt Date: 20080118
  Transmission Date: 20080703
  Serious: Yes (Hospitalization)
  Sender: FDA-Public Use
  Company Number: 2008SP001065

PATIENT
  Age: 65 Year
  Sex: Male
  Weight: 66 kg

DRUGS (6)
  1. PEG-INTRON [Suspect]
     Indication: HEPATITIS C
     Dosage: 100 MCG; QW; SC
     Route: 058
     Dates: start: 20070828, end: 20080110
  2. REBETOL [Suspect]
     Indication: HEPATITIS C
     Dosage: 800 MG; QD; PO, 400 MG; QD; PO
     Route: 048
     Dates: end: 20080110
  3. REBETOL [Suspect]
     Indication: HEPATITIS C
     Dosage: 800 MG; QD; PO, 400 MG; QD; PO
     Route: 048
     Dates: start: 20070828
  4. LENDORMIN D [Concomitant]
  5. FLUVASTATIN [Concomitant]
  6. SELBEX [Concomitant]

REACTIONS (3)
  - GAIT DISTURBANCE [None]
  - SUBDURAL HAEMATOMA [None]
  - URINARY INCONTINENCE [None]
